FAERS Safety Report 5621765-7 (Version None)
Quarter: 2008Q1

REPORT INFORMATION
  Report Type: 
  Country: None (occurrence: None)
  Receive Date: 20080211
  Receipt Date: 20080131
  Transmission Date: 20080703
  Serious: Yes (Other)
  Sender: FDA-Public Use
  Company Number: PHRM2008FR00756

PATIENT
  Age: 16 Year
  Sex: Male
  Weight: 40 kg

DRUGS (2)
  1. PRIMPERAN INJ [Suspect]
     Indication: CONGENITAL APLASTIC ANAEMIA
  2. EXJADE [Suspect]
     Indication: IRON OVERLOAD
     Dosage: 500 MG DAILY
     Route: 048
     Dates: start: 20070201

REACTIONS (1)
  - HAEMOGLOBIN DECREASED [None]
